FAERS Safety Report 4716397-9 (Version None)
Quarter: 2005Q3

REPORT INFORMATION
  Report Type: 
  Country: None (occurrence: None)
  Receive Date: 20050713
  Receipt Date: 20050701
  Transmission Date: 20060218
  Serious: Yes (Hospitalization, Other)
  Sender: FDA-Public Use
  Company Number: USA-2005-0020699

PATIENT
  Age: 61 Year
  Sex: Female

DRUGS (8)
  1. OXYCONTIN [Suspect]
  2. OXYCODONE HCL [Suspect]
  3. SENOKOT [Suspect]
  4. COLACE CAPSULES (DOCUSATE SODIUM) [Suspect]
  5. LEP-ETU () [Suspect]
  6. FERROUS SULFATE TAB [Concomitant]
  7. MILK OF MAGNESIA TAB [Concomitant]
  8. LACTULOSE [Concomitant]

REACTIONS (3)
  - BACTERAEMIA [None]
  - CONSTIPATION [None]
  - PELVIC ABSCESS [None]
